FAERS Safety Report 8124506-7 (Version None)
Quarter: 2012Q1

REPORT INFORMATION
  Report Type: 
  Country: None (occurrence: None)
  Receive Date: 20120209
  Receipt Date: 20120130
  Transmission Date: 20120608
  Serious: Yes (Hospitalization, Other)
  Sender: FDA-Public Use
  Company Number: US-ELI_LILLY_AND_COMPANY-US201104003373

PATIENT
  Sex: Female

DRUGS (1)
  1. FORTEO [Suspect]
     Dosage: 20 UG, QD
     Route: 058
     Dates: start: 20110201, end: 20110505

REACTIONS (4)
  - URINARY TRACT INFECTION [None]
  - BACK PAIN [None]
  - TRANSIENT ISCHAEMIC ATTACK [None]
  - PAIN [None]
